FAERS Safety Report 6435278-6 (Version None)
Quarter: 2009Q4

REPORT INFORMATION
  Report Type: 
  Country: None (occurrence: None)
  Receive Date: 20091110
  Receipt Date: 20091104
  Transmission Date: 20100525
  Serious: Yes (Other)
  Sender: FDA-Public Use
  Company Number: US-RB-024172-09

PATIENT
  Age: 56 Year
  Sex: Male

DRUGS (4)
  1. SUBOXONE [Suspect]
     Indication: DRUG DEPENDENCE
     Route: 060
     Dates: start: 20090801, end: 20091101
  2. VALIUM [Concomitant]
     Indication: ANXIETY
     Route: 065
  3. PROZAC [Concomitant]
     Indication: DEPRESSION
     Route: 065
  4. CLONIDINE [Concomitant]
     Indication: ANXIETY
     Dosage: NO DOSING DETAILS KNOWN
     Route: 065

REACTIONS (2)
  - DEPRESSION [None]
  - SUICIDAL IDEATION [None]
